FAERS Safety Report 7938049-4 (Version None)
Quarter: 2011Q4

REPORT INFORMATION
  Report Type: 
  Country: None (occurrence: None)
  Receive Date: 20111123
  Receipt Date: 20111118
  Transmission Date: 20120403
  Serious: Yes (Hospitalization, Other)
  Sender: FDA-Public Use
  Company Number: US-B.I. PHARMACEUTICALS,INC./RIDGEFIELD-2011-BP-23554BP

PATIENT
  Age: 69 Year
  Sex: Male
  Weight: 78.93 kg

DRUGS (2)
  1. PRADAXA [Suspect]
     Indication: ATRIAL FIBRILLATION
     Dosage: 300 MG
  2. PRADAXA [Suspect]
     Dosage: 300 MG

REACTIONS (6)
  - HAEMATURIA [None]
  - TRANSIENT ISCHAEMIC ATTACK [None]
  - NEPHROLITHIASIS [None]
  - POST PROCEDURAL HAEMORRHAGE [None]
  - PROSTATOMEGALY [None]
  - URETERIC OBSTRUCTION [None]
